FAERS Safety Report 4680808-8 (Version None)
Quarter: 2005Q2

REPORT INFORMATION
  Report Type: 
  Country: None (occurrence: None)
  Receive Date: 20050601
  Receipt Date: 20050601
  Transmission Date: 20051028
  Serious: Yes (Other)
  Sender: FDA-Public Use
  Company Number: None

PATIENT
  Age: 30 Year
  Sex: Female
  Weight: 77.1115 kg

DRUGS (2)
  1. DURAGESIC-50 [Suspect]
     Indication: PAIN
     Dosage: 1 PATCH , Q 3 DAYS , TOPICALLY
     Route: 061
     Dates: start: 20050513
  2. DURAGESIC-50 [Suspect]
     Indication: PAIN
     Dosage: 1 PATCH , Q 3 DAYS , TOPICALLY
     Route: 061
     Dates: start: 20050515

REACTIONS (5)
  - DIZZINESS [None]
  - DYSPNOEA [None]
  - INCORRECT DOSE ADMINISTERED [None]
  - MEDICATION ERROR [None]
  - PHARMACEUTICAL PRODUCT COMPLAINT [None]
